FAERS Safety Report 10472301 (Version 1)
Quarter: 2014Q3

REPORT INFORMATION
  Report Type: Spontaneous
  Country: US (occurrence: None)
  Receive Date: 20140923
  Receipt Date: 20140923
  Transmission Date: 20150326
  Serious: Yes (Hospitalization)
  Sender: FDA-Public Use
  Company Number: None

PATIENT
  Age: 58 Year
  Sex: Female
  Weight: 86 kg

DRUGS (3)
  1. CHEMOTHERAPY [Concomitant]
     Active Substance: UNSPECIFIED INGREDIENT
  2. NICOTINE. [Suspect]
     Active Substance: NICOTINE
  3. RADIATION [Concomitant]
     Active Substance: RADIATION THERAPY

REACTIONS (3)
  - Gangrene [None]
  - Peripheral vascular disorder [None]
  - Wound infection [None]

NARRATIVE: CASE EVENT DATE: 20140903
